FAERS Safety Report 5900945-7 (Version None)
Quarter: 2008Q3

REPORT INFORMATION
  Report Type: 
  Country: None (occurrence: None)
  Receive Date: 20080929
  Receipt Date: 20080918
  Transmission Date: 20090109
  Serious: Yes (Death, Hospitalization)
  Sender: FDA-Public Use
  Company Number: JP-ABBOTT-08P-087-0474161-00

PATIENT
  Age: 79 Year
  Sex: Male

DRUGS (4)
  1. LEUPROLIDE ACETATE [Suspect]
     Indication: PROSTATE CANCER STAGE III
     Route: 058
     Dates: start: 20060725, end: 20070717
  2. LEUPROLIDE ACETATE [Suspect]
     Route: 058
     Dates: start: 20071112, end: 20071112
  3. LEUPROLIDE ACETATE [Suspect]
     Dosage: 3.75 MG FORMULATION
     Route: 058
     Dates: start: 20060424
  4. BICALUTAMIDE [Concomitant]
     Indication: PROSTATE CANCER STAGE III
     Route: 048
     Dates: start: 20060516, end: 20071009

REACTIONS (4)
  - INJECTION SITE ERYTHEMA [None]
  - INJECTION SITE INDURATION [None]
  - INJECTION SITE SWELLING [None]
  - PANCREATIC CARCINOMA [None]
